FAERS Safety Report 9562331 (Version 4)
Quarter: 2013Q4

REPORT INFORMATION
  Report Type: Report from Study
  Country: US (occurrence: US)
  Receive Date: 20130927
  Receipt Date: 20131115
  Transmission Date: 20140711
  Serious: Yes (Hospitalization)
  Sender: FDA-Public Use
  Company Number: US-ACTELION-A-US2013-87790

PATIENT
  Age: 57 Year
  Sex: Female

DRUGS (7)
  1. TRACLEER [Suspect]
     Indication: PULMONARY ARTERIAL HYPERTENSION
     Dosage: 125 MG, BID
     Route: 048
     Dates: start: 201302
  2. REMODULIN [Concomitant]
  3. SILDENAFIL [Concomitant]
  4. LASIX [Concomitant]
     Dosage: 20 MG, BID
  5. ALBUTEROL [Concomitant]
  6. LEVOSALBUTAMOL [Concomitant]
  7. ADCIRCA [Concomitant]

REACTIONS (5)
  - Fluid overload [Unknown]
  - Pneumonia [Unknown]
  - Pyrexia [Unknown]
  - Right ventricular failure [Recovering/Resolving]
  - Oxygen saturation decreased [Recovered/Resolved]
